FAERS Safety Report 5191311-3 (Version None)
Quarter: 2006Q4

REPORT INFORMATION
  Report Type: 
  Country: None (occurrence: None)
  Receive Date: 20061226
  Receipt Date: 20061219
  Transmission Date: 20070319
  Serious: Yes (Life-Threatening)
  Sender: FDA-Public Use
  Company Number: FR-BRISTOL-MYERS SQUIBB COMPANY-13619226

PATIENT
  Age: 72 Year
  Sex: Male
  Weight: 73 kg

DRUGS (5)
  1. HYDREA [Suspect]
     Indication: CHRONIC MYELOID LEUKAEMIA
     Route: 048
     Dates: start: 19980901
  2. ARACYTINE [Suspect]
     Indication: CHRONIC MYELOID LEUKAEMIA
     Dates: start: 19981001
  3. INTERFERON ALFACON-1 [Suspect]
     Indication: CHRONIC MYELOID LEUKAEMIA
     Dates: start: 19980901, end: 20000410
  4. GLEEVEC [Suspect]
     Indication: CHRONIC MYELOID LEUKAEMIA
     Dates: start: 20010202, end: 20061128
  5. FLECAINIDE ACETATE [Concomitant]
     Indication: ATRIAL FIBRILLATION

REACTIONS (1)
  - LYMPHOMA [None]
